FAERS Safety Report 24330066 (Version 1)
Quarter: 2024Q3

REPORT INFORMATION
  Report Type: Report from Study
  Country: ZA (occurrence: ZA)
  Receive Date: 20240917
  Receipt Date: 20240917
  Transmission Date: 20241017
  Serious: Yes (Hospitalization)
  Sender: ABBVIE
  Company Number: ZA-ABBOTT-2024A-1386342

PATIENT
  Age: 57 Year
  Sex: Female

DRUGS (40)
  1. CREON [Suspect]
     Active Substance: PANCRELIPASE AMYLASE\PANCRELIPASE LIPASE\PANCRELIPASE PROTEASE
     Indication: Pancreatic failure
     Dosage: 150 MG TAKE ONE CAPSULE PER MEAL?CREON 10000
     Route: 048
  2. BUTYLSCOPOLAMINE BROMIDE\METAMIZOLE SODIUM [Concomitant]
     Active Substance: BUTYLSCOPOLAMINE BROMIDE\METAMIZOLE SODIUM
     Indication: Product used for unknown indication
     Dosage: TAKE ONE TABLET THREE TIMES A DAY
     Route: 048
  3. FLUTICASONE PROPIONATE\SALMETEROL XINAFOATE [Concomitant]
     Active Substance: FLUTICASONE PROPIONATE\SALMETEROL XINAFOATE
     Indication: Asthma
     Dosage: 25/125 MCG TAKE TWO INHALATIONS TWICE A DAY
     Route: 055
  4. Aprepitant 80 eurolab [Concomitant]
     Indication: Product used for unknown indication
     Dosage: 80 MG TAKE ONE 80MG CAPSULE ON DAYS 2-5
     Route: 048
  5. Oselflu [Concomitant]
     Indication: Product used for unknown indication
     Dosage: 75 MG TAKE ONE TABLET TWICE A DAY
     Route: 048
  6. QUETIAPINE [Concomitant]
     Active Substance: QUETIAPINE
     Indication: Mental disorder
     Dosage: 100 MG TAKE ONE TABLET IN THE EVENING
     Route: 048
  7. Topraz [Concomitant]
     Indication: Asthma
     Dosage: 10 MG TAKE ONE TABLET ONCE DAILY
     Route: 048
  8. CIMETIDINE [Concomitant]
     Active Substance: CIMETIDINE
     Indication: Antacid therapy
     Dosage: 200 MG ADMINISTER 200MG ON DAY ONE OF TREATMENT
     Route: 058
  9. FLUTICASONE PROPIONATE\SALMETEROL XINAFOATE [Concomitant]
     Active Substance: FLUTICASONE PROPIONATE\SALMETEROL XINAFOATE
     Indication: Asthma
     Dosage: 50/250 MCG TAKE ONE INHALATION TWICE A DAY
     Route: 055
  10. FLUOROURACIL [Concomitant]
     Active Substance: FLUOROURACIL
     Indication: Chemotherapy
     Dosage: 1000 MG ADMINISTER 4460MG CIVI IN PUMP OPVER 46 HOURS
     Route: 042
  11. ECOTRIN [Concomitant]
     Active Substance: ASPIRIN
     Indication: Thrombosis prophylaxis
     Dosage: 81 MG TAKE ONE TABLET ONCE DAILY
     Route: 048
  12. PALONOSETRON HYDROCHLORIDE [Concomitant]
     Active Substance: PALONOSETRON HYDROCHLORIDE
     Indication: Product used for unknown indication
     Dosage: 0.25 MG ADMINISTER 0,25MG ON DAY ONE OF TREATMENT
     Route: 058
  13. RYZODEG 70/30 [Concomitant]
     Active Substance: INSULIN ASPART\INSULIN DEGLUDEC
     Indication: Type 1 diabetes mellitus
     Dosage: 100 U INJECT 12UNITS BEFORE SUPPER
     Route: 058
  14. ATROPINE SULPHATE FRESENIUS [Concomitant]
     Indication: Product used for unknown indication
     Dosage: 0.5 MG ADMINISTER 0,5MG ON DAY ONE OF TREATMENT
     Route: 058
  15. ACETYLCYSTEINE [Concomitant]
     Active Substance: ACETYLCYSTEINE
     Indication: Product used for unknown indication
     Dosage: 200 MG TAKE ONE DISSOLVED IN WATER THREE TIMES A DAY
     Route: 048
  16. Aprepitant 125 eurolab [Concomitant]
     Indication: Product used for unknown indication
     Dosage: 125 MG TAKE ONE 125MG CAPSULE ON DAY ONE OF TREATMENT
     Route: 048
  17. Lipogen [Concomitant]
     Indication: Blood cholesterol
     Dosage: 10 MG TAKE ONE TABLET IN THE EVENING
     Route: 048
  18. Lipogen [Concomitant]
     Indication: Blood cholesterol
     Dosage: 40 MG ONE AT NIGHT
  19. OPLAXIN [Concomitant]
     Indication: Chemotherapy
     Dosage: 100 MG ADMINISTER 155MG ON DAY ONE OF TREATMENT
     Route: 042
  20. CLOBAZAM [Concomitant]
     Active Substance: CLOBAZAM
     Indication: Anxiety
     Dosage: 5 MG TAKE A CAPSULE TWICE A DAY
     Route: 048
  21. Synaleve [Concomitant]
     Indication: Pain
     Dosage: TAKE TWO CAPSULES THREE TIMES A DAY
     Route: 048
  22. METOCLOPRAMIDE HYDROCHLORIDE [Concomitant]
     Active Substance: METOCLOPRAMIDE HYDROCHLORIDE
     Indication: Product used for unknown indication
     Dosage: 10 MG TAKE ONE TABLET TWICE A DAY IF NECESSARY
     Route: 048
  23. FLUTICASONE FUROATE [Concomitant]
     Active Substance: FLUTICASONE FUROATE
     Indication: Hypersensitivity
     Dosage: 27.5 MCG TWO SYRINGES IN EACH NOSTRIL ONCE DAILY
     Route: 045
  24. ESTRADIOL HEMIHYDRATE [Concomitant]
     Active Substance: ESTRADIOL HEMIHYDRATE
     Indication: Hormone replacement therapy
     Dosage: 2 MG TAKE ONE TABLET ONCE DAILY
     Route: 048
  25. LANSOPRAZOLE [Concomitant]
     Active Substance: LANSOPRAZOLE
     Indication: Ulcer
     Dosage: 30 MG TAKE ONE CAPSULE ONCE DAILY
     Route: 048
  26. ALBUTEROL SULFATE [Concomitant]
     Active Substance: ALBUTEROL SULFATE
     Indication: Bronchospasm
     Dosage: 100 MCG TWO AS NEEDED?ASTHAVENT ECOHALER 200DOSE
     Route: 055
  27. IRINOTAS [Concomitant]
     Indication: Chemotherapy
     Dosage: 100 MG ADMINISTER 280MG ON DAY ONE OF TREATMENT
     Route: 042
  28. IRINOTAS [Concomitant]
     Indication: Chemotherapy
     Dosage: 40 MG ADMINISTER 280MG ON DAY ONE OF TREATMENT
     Route: 042
  29. PREDNISONE [Concomitant]
     Active Substance: PREDNISONE
     Indication: Product used for unknown indication
     Dosage: 5 MG TAKE FOUR TABLETS IN THE MORNING AFTER MEAL(S)
     Route: 048
  30. ESOMEPRAZOLE MAGNESIUM [Concomitant]
     Active Substance: ESOMEPRAZOLE MAGNESIUM
     Indication: Gastrooesophageal reflux disease
     Dosage: 40 MG TAKE ONE TABLET HALF AN HOUR IN THE MORNING
     Route: 048
  31. Pantocid [Concomitant]
     Indication: Ulcer
     Dosage: 40 MG TAKE ONE TABLET ONCE DAILY
     Route: 048
  32. GLUCOPHAGE XR [Concomitant]
     Active Substance: METFORMIN HYDROCHLORIDE
     Indication: Type 2 diabetes mellitus
     Dosage: 1000 MG TAKE ONE TABLET ONCE DAILY
     Route: 048
  33. PROMETHAZINE HCL FRESENIUS [Concomitant]
     Indication: Product used for unknown indication
     Dosage: 25 MG ADMINISTER 12,5MG ON DAY ONE OF TREATMENT
     Route: 058
  34. Tramazac [Concomitant]
     Indication: Pain
     Dosage: 50 MG TAKE ONE CAPSULE THREE TIMES A DAY
     Route: 048
  35. ALPRAZOLAM [Concomitant]
     Active Substance: ALPRAZOLAM
     Indication: Anxiety
     Dosage: 0.25 MG TAKE ONE TABLET THREE TIMES A DAY
     Route: 048
  36. THIAMINE [Concomitant]
     Active Substance: THIAMINE
     Indication: Product used for unknown indication
     Dosage: 100 MG TAKE ONE TABLET ONCE DAILY
     Route: 048
  37. TIOTROPIUM BROMIDE [Concomitant]
     Active Substance: TIOTROPIUM BROMIDE
     Indication: Chronic obstructive pulmonary disease
     Dosage: 10 MCG ONCE DAILY
     Route: 055
  38. ABIC LEUCOVORIN [Concomitant]
     Indication: Chemotherapy
     Dosage: 100 MG ADMINISTER 740MG ON DAY ONE OF TREATMENT
     Route: 042
  39. ABIC LEUCOVORIN [Concomitant]
     Indication: Chemotherapy
     Dosage: 300 MG ADMINISTER 740MG ON DAY ONE OF TREATMENT
     Route: 042
  40. ACETAMINOPHEN\TRAMADOL [Concomitant]
     Active Substance: ACETAMINOPHEN\TRAMADOL
     Indication: Pain
     Dosage: TAKE TWO TABLETS FOUR TIMES A DAY
     Route: 048

REACTIONS (1)
  - Illness [Unknown]

NARRATIVE: CASE EVENT DATE: 20240501
